FAERS Safety Report 11102583 (Version 2)
Quarter: 2015Q3

REPORT INFORMATION
  Report Type: Spontaneous
  Country: US (occurrence: US)
  Receive Date: 20150511
  Receipt Date: 20150721
  Transmission Date: 20151125
  Serious: Yes (Other)
  Sender: FDA-Public Use
  Company Number: US-ASTRAZENECA-2015SE41464

PATIENT
  Age: 25429 Day
  Sex: Male
  Weight: 92.5 kg

DRUGS (3)
  1. CELEBREX [Concomitant]
     Active Substance: CELECOXIB
     Indication: ARTHRITIS
  2. CRESTOR [Suspect]
     Active Substance: ROSUVASTATIN CALCIUM
     Route: 048
  3. CRESTOR [Suspect]
     Active Substance: ROSUVASTATIN CALCIUM
     Route: 048

REACTIONS (4)
  - Monoplegia [Recovered/Resolved]
  - Cardiac disorder [Unknown]
  - Muscular weakness [Unknown]
  - Myopathy [Unknown]

NARRATIVE: CASE EVENT DATE: 20150420
